FAERS Safety Report 7337796-5 (Version None)
Quarter: 2011Q1

REPORT INFORMATION
  Report Type: 
  Country: None (occurrence: None)
  Receive Date: 20110224
  Receipt Date: 20110211
  Transmission Date: 20110831
  Serious: Yes (Death)
  Sender: FDA-Public Use
  Company Number: 2009002031

PATIENT
  Age: 72 Year
  Sex: Female

DRUGS (3)
  1. PANTOPRAZOLE [Concomitant]
  2. DOMPERIDONE (DOMPERIDONE) [Concomitant]
  3. ERLOTINIB/PLACEBO (ERLOTINIB) (TABLET) (ERLOTINIB) [Suspect]
     Indication: PANCREATIC CARCINOMA
     Dosage: QD, ORAL
     Route: 048
     Dates: start: 20090525, end: 20090618

REACTIONS (7)
  - DIARRHOEA [None]
  - DEHYDRATION [None]
  - METABOLIC ACIDOSIS [None]
  - SEPSIS [None]
  - MUCOSAL INFLAMMATION [None]
  - HAEMOGLOBIN DECREASED [None]
  - ASPARTATE AMINOTRANSFERASE INCREASED [None]
